FAERS Safety Report 10466534 (Version 1)
Quarter: 2014Q3

REPORT INFORMATION
  Report Type: Spontaneous
  Country: GB (occurrence: None)
  Receive Date: 20140918
  Receipt Date: 20140918
  Transmission Date: 20150326
  Serious: Yes (Other)
  Sender: FDA-Public Use
  Company Number: GB-DEXPHARM-20140594

PATIENT
  Sex: Male

DRUGS (3)
  1. OMEPRAZOLE. [Suspect]
     Active Substance: OMEPRAZOLE
     Indication: PROPHYLAXIS
     Route: 048
  2. CALCEOS [Concomitant]
     Active Substance: CALCIUM CARBONATE\CHOLECALCIFEROL
  3. RENAVIT [Concomitant]

REACTIONS (9)
  - Anaemia [None]
  - Fatigue [None]
  - Nausea [None]
  - Tubulointerstitial nephritis [None]
  - Weight decreased [None]
  - Renal failure [None]
  - Dialysis [None]
  - Drug ineffective [None]
  - Decreased appetite [None]
